FAERS Safety Report 19649164 (Version 1)
Quarter: 2021Q3

REPORT INFORMATION
  Report Type: Spontaneous
  Country: US (occurrence: US)
  Receive Date: 20210803
  Receipt Date: 20210803
  Transmission Date: 20211014
  Serious: Yes (Other)
  Sender: FDA-Public Use
  Company Number: US-GALDERMA-US2021014713

PATIENT

DRUGS (1)
  1. ADAPALENE GEL, 0.1% [Suspect]
     Active Substance: ADAPALENE
     Dosage: 1 DOSAGE FORM
     Route: 061

REACTIONS (6)
  - Headache [Unknown]
  - Optic disc haemorrhage [Unknown]
  - Visual field defect [Recovering/Resolving]
  - Idiopathic intracranial hypertension [Unknown]
  - Papilloedema [Recovering/Resolving]
  - Optic atrophy [Unknown]
